FAERS Safety Report 13012309 (Version 1)
Quarter: 2016Q4

REPORT INFORMATION
  Report Type: Spontaneous
  Country: US (occurrence: US)
  Receive Date: 20161207
  Receipt Date: 20161207
  Transmission Date: 20170207
  Serious: Yes (Hospitalization)
  Sender: FDA-Public Use
  Company Number: None

PATIENT
  Age: 78 Year
  Sex: Male
  Weight: 86 kg

DRUGS (1)
  1. ATENOLOL. [Suspect]
     Active Substance: ATENOLOL
     Indication: VASCULAR OPERATION
     Route: 048
     Dates: start: 20130607, end: 20160616

REACTIONS (1)
  - Sinus bradycardia [None]

NARRATIVE: CASE EVENT DATE: 20160616
